FAERS Safety Report 6582298-7 (Version None)
Quarter: 2010Q1

REPORT INFORMATION
  Report Type: 
  Country: None (occurrence: None)
  Receive Date: 20100216
  Receipt Date: 20100204
  Transmission Date: 20100710
  Serious: Yes (Hospitalization, Other)
  Sender: FDA-Public Use
  Company Number: US-ELI_LILLY_AND_COMPANY-US201001001609

PATIENT
  Sex: Female

DRUGS (3)
  1. FORTEO [Suspect]
     Indication: OSTEOPOROSIS
     Dosage: 20 UG, DAILY (1/D)
     Dates: start: 20091201, end: 20091201
  2. TEGRETOL [Concomitant]
     Dosage: UNK, DAILY (1/D)
  3. MORPHINE SULFATE [Concomitant]
     Dosage: UNK, DAILY (1/D)
     Route: 042

REACTIONS (2)
  - LUNG CARCINOMA CELL TYPE UNSPECIFIED STAGE IV [None]
  - NEOPLASM MALIGNANT [None]
